FAERS Safety Report 12829019 (Version 2)
Quarter: 2017Q3

REPORT INFORMATION
  Report Type: Spontaneous
  Country: US (occurrence: US)
  Receive Date: 20161007
  Receipt Date: 20170928
  Transmission Date: 20171127
  Serious: No
  Sender: FDA-Public Use
  Company Number: US-SA-2016SA039308

PATIENT
  Age: 57 Year
  Sex: Female
  Weight: 124.28 kg

DRUGS (4)
  1. GABAPENTIN. [Concomitant]
     Active Substance: GABAPENTIN
     Indication: NEURALGIA
  2. AUBAGIO [Suspect]
     Active Substance: TERIFLUNOMIDE
     Indication: MULTIPLE SCLEROSIS
     Route: 065
     Dates: start: 201512, end: 201602
  3. CYCLOBENZAPRINE. [Concomitant]
     Active Substance: CYCLOBENZAPRINE
  4. IBUPROFEN. [Concomitant]
     Active Substance: IBUPROFEN
     Indication: PAIN

REACTIONS (1)
  - Exfoliative rash [Recovered/Resolved]

NARRATIVE: CASE EVENT DATE: 201601
